FAERS Safety Report 8246136-9 (Version None)
Quarter: 2012Q1

REPORT INFORMATION
  Report Type: 
  Country: None (occurrence: None)
  Receive Date: 20120330
  Receipt Date: 20120321
  Transmission Date: 20120608
  Serious: Yes (Hospitalization, Other)
  Sender: FDA-Public Use
  Company Number: DE-ELI_LILLY_AND_COMPANY-DE201203005914

PATIENT
  Sex: Female

DRUGS (3)
  1. VITAMIN D [Concomitant]
  2. FORTEO [Suspect]
     Indication: OSTEOPOROSIS
     Dosage: UNK, QD
     Route: 058
     Dates: start: 20100603
  3. CALCIUM CARBONATE [Concomitant]

REACTIONS (3)
  - CATHETER PLACEMENT [None]
  - GAIT DISTURBANCE [None]
  - DYSPNOEA [None]
